FAERS Safety Report 7255665-6 (Version None)
Quarter: 2011Q1

REPORT INFORMATION
  Report Type: 
  Country: None (occurrence: None)
  Receive Date: 20110129
  Receipt Date: 20100507
  Transmission Date: 20110831
  Serious: No
  Sender: FDA-Public Use
  Company Number: PR-ABBOTT-10P-131-0643072-00

PATIENT
  Sex: Female
  Weight: 75.364 kg

DRUGS (3)
  1. HUMIRA [Suspect]
     Indication: PSORIASIS
     Route: 058
     Dates: start: 20100401
  2. PURINETHOL [Concomitant]
     Indication: CROHN'S DISEASE
     Route: 048
     Dates: end: 20100401
  3. HUMIRA [Suspect]
     Indication: CROHN'S DISEASE

REACTIONS (3)
  - PHOTOPHOBIA [None]
  - EYE IRRITATION [None]
  - VISION BLURRED [None]
